FAERS Safety Report 11762639 (Version 1)
Quarter: 2015Q4

REPORT INFORMATION
  Report Type: Spontaneous
  Country: US (occurrence: US)
  Receive Date: 20151120
  Receipt Date: 20151120
  Transmission Date: 20160304
  Serious: No
  Sender: FDA-Public Use
  Company Number: US-ELI_LILLY_AND_COMPANY-US201301002774

PATIENT
  Sex: Female

DRUGS (2)
  1. FORTEO [Suspect]
     Active Substance: TERIPARATIDE
     Indication: OSTEOPOROSIS
     Dosage: 20 UG, QD
     Route: 058
     Dates: start: 20121214
  2. FORTEO [Suspect]
     Active Substance: TERIPARATIDE
     Dosage: 20 UG, QD
     Route: 058
     Dates: end: 20130116

REACTIONS (11)
  - Movement disorder [Unknown]
  - Fracture pain [Unknown]
  - Sleep disorder due to general medical condition, insomnia type [Unknown]
  - Myalgia [Not Recovered/Not Resolved]
  - Dyskinesia [Unknown]
  - Musculoskeletal discomfort [Unknown]
  - Back pain [Unknown]
  - Arthralgia [Unknown]
  - Intervertebral disc protrusion [Unknown]
  - Sleep disorder due to a general medical condition [Unknown]
  - Musculoskeletal pain [Not Recovered/Not Resolved]
